FAERS Safety Report 4995235-3 (Version None)
Quarter: 2006Q2

REPORT INFORMATION
  Report Type: 
  Country: None (occurrence: None)
  Receive Date: 20060508
  Receipt Date: 20050711
  Transmission Date: 20061013
  Serious: Yes (Hospitalization)
  Sender: FDA-Public Use
  Company Number: US-MERCK-0507USA01671

PATIENT
  Age: 73 Year
  Sex: Female
  Weight: 142 kg

DRUGS (11)
  1. VIOXX [Suspect]
     Indication: ARTHRALGIA
     Route: 048
     Dates: start: 20030425, end: 20030501
  2. BETAMETHASONE VALERATE AND CLOTRIMAZOLE [Concomitant]
     Route: 065
  3. INSULIN [Concomitant]
     Indication: DIABETES MELLITUS
     Route: 065
  4. ATIVAN [Concomitant]
     Indication: ANXIETY
     Route: 065
     Dates: start: 19990101
  5. TYLENOL (CAPLET) [Concomitant]
     Indication: ARTHRALGIA
     Route: 065
     Dates: start: 19980101
  6. MICRO-K [Concomitant]
     Route: 065
  7. ASPIRIN [Concomitant]
     Indication: PROPHYLAXIS
     Route: 048
     Dates: start: 19970101
  8. HYDRODIURIL [Concomitant]
     Route: 065
  9. TAGAMET [Concomitant]
     Route: 065
  10. [THERAPY UNSPECIFIED] [Concomitant]
     Route: 065
  11. ATENOLOL [Concomitant]
     Route: 065

REACTIONS (6)
  - BLOOD TRIGLYCERIDES INCREASED [None]
  - CARDIAC FAILURE CONGESTIVE [None]
  - CHRONIC OBSTRUCTIVE PULMONARY DISEASE [None]
  - FALL [None]
  - NEUROPATHIC ARTHROPATHY [None]
  - VENTRICULAR HYPERTROPHY [None]
